FAERS Safety Report 10303452 (Version 1)
Quarter: 2014Q3

REPORT INFORMATION
  Report Type: Spontaneous
  Country: JP (occurrence: JP)
  Receive Date: 20140714
  Receipt Date: 20140714
  Transmission Date: 20150326
  Serious: Yes (Other)
  Sender: FDA-Public Use
  Company Number: JP-ACTAVIS-2014-15097

PATIENT
  Age: 55 Year
  Sex: Male
  Weight: 44 kg

DRUGS (2)
  1. OXALIPLATIN (UNKNOWN) [Suspect]
     Active Substance: OXALIPLATIN
     Indication: COLON CANCER RECURRENT
     Dosage: 130 MG/M2, UNK; ON THE 1ST DAY
     Route: 041
  2. CAPECITABINE (UNKNOWN) [Suspect]
     Active Substance: CAPECITABINE
     Indication: COLON CANCER RECURRENT
     Dosage: 1000 MG/M2, BID; (3-WEEK COURSE:14 DAYS INTERNAL USE, 7 DAYS CESSATION)
     Route: 048

REACTIONS (1)
  - Anaemia [Unknown]
